FAERS Safety Report 18220265 (Version 2)
Quarter: 2020Q4

REPORT INFORMATION
  Report Type: Spontaneous
  Country: US (occurrence: US)
  Receive Date: 20200902
  Receipt Date: 20201007
  Transmission Date: 20210113
  Serious: No
  Sender: FDA-Public Use
  Company Number: US-JNJFOC-20200842317

PATIENT
  Age: 77 Year
  Sex: Female

DRUGS (1)
  1. MENS ROGAINE EXTRA STRENGTH [Suspect]
     Active Substance: MINOXIDIL
     Indication: ALOPECIA
     Dosage: DOSE : 5ML AND FREQUENCY: TWICE A DAY.?THE PRODUCT WAS LAST USED ON : 20/AUG/2020.
     Route: 061
     Dates: start: 20200610

REACTIONS (6)
  - Product use issue [Unknown]
  - Alopecia [Recovered/Resolved]
  - Application site exfoliation [Recovered/Resolved]
  - Overdose [Unknown]
  - Off label use [Unknown]
  - Hair texture abnormal [Recovered/Resolved]

NARRATIVE: CASE EVENT DATE: 202006
